FAERS Safety Report 14044532 (Version 1)
Quarter: 2017Q4

REPORT INFORMATION
  Report Type: Spontaneous
  Country: AE (occurrence: AE)
  Receive Date: 20171004
  Receipt Date: 20171004
  Transmission Date: 20180321
  Serious: Yes (Hospitalization)
  Sender: FDA-Public Use
  Company Number: AE-SA-2017SA183743

PATIENT
  Age: 30 Year
  Sex: Female

DRUGS (1)
  1. AUBAGIO [Suspect]
     Active Substance: TERIFLUNOMIDE
     Route: 048

REACTIONS (3)
  - Abortion [Unknown]
  - Haemorrhage [Recovered/Resolved]
  - Exposure during pregnancy [Unknown]
